FAERS Safety Report 21918110 (Version 1)
Quarter: 2023Q1

REPORT INFORMATION
  Report Type: Report from Study
  Country: CA (occurrence: CA)
  Receive Date: 20230127
  Receipt Date: 20230127
  Transmission Date: 20230417
  Serious: Yes (Other)
  Sender: FDA-Public Use
  Company Number: CA-002147023-PHHY2018CA008406

PATIENT
  Age: 51 Year
  Sex: Female

DRUGS (31)
  1. GILENYA [Suspect]
     Active Substance: FINGOLIMOD HYDROCHLORIDE
     Indication: Secondary progressive multiple sclerosis
     Dosage: UNK
     Route: 048
     Dates: start: 20180116, end: 20180318
  2. MAYZENT [Suspect]
     Active Substance: SIPONIMOD
     Indication: Secondary progressive multiple sclerosis
     Dosage: 2 MG, QD
     Route: 048
     Dates: start: 20211015
  3. ZOMIG [Concomitant]
     Active Substance: ZOLMITRIPTAN
     Indication: Product used for unknown indication
     Dosage: 5 MG, UNK
     Route: 065
  4. AURO GABAPENTIN [Concomitant]
     Indication: Product used for unknown indication
     Dosage: 400 MG, UNK
     Route: 065
  5. DILAUDID [Concomitant]
     Active Substance: HYDROMORPHONE HYDROCHLORIDE
     Indication: Product used for unknown indication
     Dosage: 2 MG, UNK
     Route: 065
  6. CHOLECALCIFEROL [Concomitant]
     Active Substance: CHOLECALCIFEROL
     Indication: Product used for unknown indication
     Dosage: 10000 OT, UNK
     Route: 065
  7. METADOL [Concomitant]
     Indication: Product used for unknown indication
     Dosage: 5 MG, UNK
     Route: 065
  8. MONUROL [Concomitant]
     Active Substance: FOSFOMYCIN TROMETHAMINE
     Indication: Product used for unknown indication
     Dosage: UNK
     Route: 065
  9. CIPROFLOXACIN HYDROCHLORIDE [Concomitant]
     Active Substance: CIPROFLOXACIN HYDROCHLORIDE
     Indication: Product used for unknown indication
     Dosage: 500 MG, UNK
     Route: 065
  10. SULFAMETHOXAZOLE\TRIMETHOPRIM [Concomitant]
     Active Substance: SULFAMETHOXAZOLE\TRIMETHOPRIM
     Indication: Product used for unknown indication
     Dosage: 160-800 MG
     Route: 065
  11. APO BISACODYL [Concomitant]
     Indication: Product used for unknown indication
     Dosage: 5 MG, UNK
     Route: 065
  12. JAMIESON VITAMIN B6 [Concomitant]
     Indication: Product used for unknown indication
     Dosage: 100 MG, UNK
     Route: 065
  13. NOVAGESIC [Concomitant]
     Indication: Product used for unknown indication
     Dosage: 500 MG, UNK
     Route: 065
  14. TERCONAZOLE [Concomitant]
     Active Substance: TERCONAZOLE
     Indication: Product used for unknown indication
     Dosage: 0.4 %, UNK
     Route: 065
  15. LINACLOTIDE [Concomitant]
     Active Substance: LINACLOTIDE
     Indication: Product used for unknown indication
     Dosage: UNK
     Route: 065
  16. RELAXA [Concomitant]
     Indication: Product used for unknown indication
     Dosage: UNK
     Route: 065
  17. CYCLOBENZAPRINE [Concomitant]
     Active Substance: CYCLOBENZAPRINE
     Indication: Product used for unknown indication
     Dosage: 10 MG, UNK
     Route: 065
  18. VESICARE [Concomitant]
     Active Substance: SOLIFENACIN SUCCINATE
     Indication: Product used for unknown indication
     Dosage: 10 MG, UNK
     Route: 065
  19. TEVA NABILONE [Concomitant]
     Indication: Product used for unknown indication
     Dosage: 0.25 MG, UNK
     Route: 065
  20. CETIRIZINE HYDROCHLORIDE [Concomitant]
     Active Substance: CETIRIZINE HYDROCHLORIDE
     Indication: Product used for unknown indication
     Dosage: 20 MG, UNK
     Route: 065
  21. NEXIUM [Concomitant]
     Active Substance: ESOMEPRAZOLE MAGNESIUM
     Indication: Product used for unknown indication
     Dosage: 40 MG, UNK
     Route: 065
  22. COPAXONE [Concomitant]
     Active Substance: GLATIRAMER ACETATE
     Indication: Product used for unknown indication
     Dosage: 40 MG/ML, UNK
     Route: 065
  23. ONDANSETRON HYDROCHLORIDE [Concomitant]
     Active Substance: ONDANSETRON HYDROCHLORIDE
     Indication: Product used for unknown indication
     Dosage: 4 MG, UNK
     Route: 065
  24. AURO CEFUROXIME [Concomitant]
     Indication: Product used for unknown indication
     Dosage: 500 MG, UNK
     Route: 065
  25. METAMUCIL [Concomitant]
     Active Substance: PLANTAGO SEED
     Indication: Product used for unknown indication
     Route: 065
  26. CEPHALEXIN [Concomitant]
     Active Substance: CEPHALEXIN
     Indication: Product used for unknown indication
     Dosage: 500 MG, UNK
     Route: 065
  27. AURO AMOXICILLIN [Concomitant]
     Indication: Product used for unknown indication
     Dosage: 500 MG, UNK
     Route: 065
  28. QUETIAPINE [Concomitant]
     Active Substance: QUETIAPINE
     Indication: Product used for unknown indication
     Dosage: 25 MG, UNK
     Route: 065
  29. MOMETASONE [Concomitant]
     Active Substance: MOMETASONE
     Indication: Product used for unknown indication
     Dosage: 50 MCG VAP NAS
     Route: 065
  30. METHADONE [Concomitant]
     Active Substance: METHADONE HYDROCHLORIDE
     Indication: Product used for unknown indication
     Dosage: (2 WEEKS)
     Route: 065
  31. EPIPEN [Concomitant]
     Active Substance: EPINEPHRINE
     Indication: Product used for unknown indication
     Dosage: 0.3 MG, UNK
     Route: 065

REACTIONS (5)
  - Multiple sclerosis [Unknown]
  - Headache [Unknown]
  - Dizziness [Unknown]
  - Fatigue [Unknown]
  - Product use in unapproved indication [Unknown]

NARRATIVE: CASE EVENT DATE: 20180116
